FAERS Safety Report 7313580-3 (Version None)
Quarter: 2011Q1

REPORT INFORMATION
  Report Type: 
  Country: None (occurrence: None)
  Receive Date: 20110218
  Receipt Date: 20110218
  Transmission Date: 20110831
  Serious: Yes (Other)
  Sender: FDA-Public Use
  Company Number: None

PATIENT
  Age: 74 Year
  Sex: Male
  Weight: 88.4514 kg

DRUGS (4)
  1. TOPROL-XL [Concomitant]
  2. LIPITOR [Concomitant]
  3. AVELOX [Suspect]
     Indication: SINUSITIS
     Dosage: 5 PILLS 1 PER DAY
     Dates: start: 20101130, end: 20101204
  4. PLAVIX [Concomitant]

REACTIONS (2)
  - YELLOW SKIN [None]
  - CARDIAC FAILURE CONGESTIVE [None]
